FAERS Safety Report 4386832-7 (Version None)
Quarter: 2004Q2

REPORT INFORMATION
  Report Type: 
  Country: None (occurrence: None)
  Receive Date: 20040630
  Receipt Date: 20040622
  Transmission Date: 20050107
  Serious: Yes (Hospitalization, Other)
  Sender: FDA-Public Use
  Company Number: AE-MERCK-0406USA01947

PATIENT
  Age: 52 Year

DRUGS (4)
  1. ASPIRIN [Concomitant]
     Route: 065
  2. TENORMIN [Concomitant]
     Route: 048
  3. MONO MACK [Concomitant]
     Route: 048
  4. ZOCOR [Suspect]
     Route: 048

REACTIONS (1)
  - ANGINA UNSTABLE [None]
